FAERS Safety Report 20753115 (Version 1)
Quarter: 2022Q2

REPORT INFORMATION
  Report Type: Spontaneous
  Country: US (occurrence: None)
  Receive Date: 20220426
  Receipt Date: 20220426
  Transmission Date: 20220721
  Serious: No
  Sender: FDA-Public Use
  Company Number: US-ROCHE-3000400

PATIENT
  Sex: Male

DRUGS (1)
  1. ESBRIET [Suspect]
     Active Substance: PIRFENIDONE
     Indication: Idiopathic pulmonary fibrosis
     Dosage: 1 TABLET THREE TIMES A DAY FOR 1 WEEK THEN 2 TABLETS THREE TIMES A DAY FOR 1 WEEK THEN 3 TABLETS THR
     Route: 048

REACTIONS (1)
  - Headache [Recovered/Resolved]
